FAERS Safety Report 10839017 (Version 3)
Quarter: 2015Q3

REPORT INFORMATION
  Report Type: Spontaneous
  Country: GB (occurrence: GB)
  Receive Date: 20150220
  Receipt Date: 20150722
  Transmission Date: 20151125
  Serious: Yes (Death, Hospitalization)
  Sender: FDA-Public Use
  Company Number: GB-AUROBINDO-AUR-APL-2015-01375

PATIENT

DRUGS (7)
  1. LISINOPRIL. [Suspect]
     Active Substance: LISINOPRIL
     Indication: HYPERTENSION
     Dosage: 20 MG, 1X/DAY
     Dates: start: 2002, end: 20141126
  2. DOXAZOSIN 4 MG [Suspect]
     Active Substance: DOXAZOSIN\DOXAZOSIN MESYLATE
     Dosage: 8 UNK, UNK
     Route: 065
  3. BECONASE AQ [Concomitant]
     Active Substance: BECLOMETHASONE DIPROPIONATE MONOHYDRATE
     Indication: INFLUENZA LIKE ILLNESS
     Dosage: UNK
     Route: 065
     Dates: start: 201505
  4. DOXAZOSIN 4 MG [Suspect]
     Active Substance: DOXAZOSIN\DOXAZOSIN MESYLATE
     Indication: HYPERTENSION
     Dosage: 4 MG, 2X/DAY
     Route: 065
     Dates: start: 2002
  5. BECONASE AQ [Concomitant]
     Active Substance: BECLOMETHASONE DIPROPIONATE MONOHYDRATE
     Indication: DYSPNOEA
  6. BECONASE AQ [Concomitant]
     Active Substance: BECLOMETHASONE DIPROPIONATE MONOHYDRATE
     Indication: CATARRH
  7. AMLODIPINE [Suspect]
     Active Substance: AMLODIPINE BESYLATE
     Indication: HYPERTENSION
     Dosage: 5 MG, 1X/DAY
     Route: 065
     Dates: start: 20140922

REACTIONS (13)
  - Myocardial ischaemia [Fatal]
  - Hyponatraemia [Unknown]
  - Gait disturbance [Unknown]
  - Confusional state [Unknown]
  - Cardiac failure congestive [Fatal]
  - Anaemia [Unknown]
  - Coronary artery disease [Fatal]
  - Hypertensive heart disease [Fatal]
  - Muscle spasms [Unknown]
  - Hypokalaemia [Unknown]
  - Dysarthria [Unknown]
  - Blood urine present [Unknown]
  - Dyspnoea [Unknown]

NARRATIVE: CASE EVENT DATE: 20141124
